FAERS Safety Report 8197275-2 (Version None)
Quarter: 2012Q1

REPORT INFORMATION
  Report Type: 
  Country: None (occurrence: None)
  Receive Date: 20120309
  Receipt Date: 20120229
  Transmission Date: 20120608
  Serious: Yes (Hospitalization)
  Sender: FDA-Public Use
  Company Number: US-PFIZER INC-2012020989

PATIENT
  Sex: Male

DRUGS (3)
  1. CARBOPLATIN [Suspect]
     Indication: HYPOPHARYNGEAL CANCER
     Dosage: UNK
     Dates: start: 20120104, end: 20120111
  2. TAXOL [Suspect]
     Indication: HYPOPHARYNGEAL CANCER
     Dosage: UNK
     Dates: start: 20120104, end: 20120111
  3. TEMSIROLIMUS [Suspect]
     Indication: HYPOPHARYNGEAL CANCER
     Dosage: UNK
     Dates: start: 20120104, end: 20120111

REACTIONS (3)
  - FEBRILE NEUTROPENIA [None]
  - OSTEOMYELITIS [None]
  - ABDOMINAL PAIN [None]
